FAERS Safety Report 8292743 (Version 20)
Quarter: 2015Q3

REPORT INFORMATION
  Report Type: Report from Study
  Country: CA (occurrence: CA)
  Receive Date: 20111215
  Receipt Date: 20150924
  Transmission Date: 20151125
  Serious: Yes (Hospitalization, Other)
  Sender: FDA-Public Use
  Company Number: CA-ROCHE-1019887

PATIENT
  Age: 56 Year
  Sex: Female
  Weight: 81.6 kg

DRUGS (17)
  1. VITAMIN B12 [Concomitant]
     Active Substance: CYANOCOBALAMIN
     Route: 065
  2. SOTALOL. [Concomitant]
     Active Substance: SOTALOL
     Indication: HYPERTENSION
     Route: 065
  3. DEPOMEDRONE [Concomitant]
     Active Substance: METHYLPREDNISOLONE ACETATE
     Route: 065
  4. DIPHENHYDRAMINE HCL [Concomitant]
     Active Substance: DIPHENHYDRAMINE HYDROCHLORIDE
     Indication: PREMEDICATION
     Route: 048
     Dates: start: 20100301
  5. METHYLPREDNISOLONE. [Concomitant]
     Active Substance: METHYLPREDNISOLONE
     Indication: PREMEDICATION
     Route: 042
     Dates: start: 20100301
  6. PREDNISONE. [Suspect]
     Active Substance: PREDNISONE
     Indication: PRODUCT USED FOR UNKNOWN INDICATION
     Route: 065
  7. LORAZEPAM. [Concomitant]
     Active Substance: LORAZEPAM
     Route: 065
  8. ASPIRIN. [Concomitant]
     Active Substance: ASPIRIN
  9. RITUXAN [Suspect]
     Active Substance: RITUXIMAB
     Route: 042
     Dates: start: 20130530
  10. ACETAMINOPHEN. [Concomitant]
     Active Substance: ACETAMINOPHEN
     Indication: PREMEDICATION
     Route: 048
     Dates: start: 20100301
  11. RABEPRAZOLE [Concomitant]
     Active Substance: RABEPRAZOLE
  12. RITUXAN [Suspect]
     Active Substance: RITUXIMAB
     Indication: RHEUMATOID ARTHRITIS
     Route: 042
     Dates: start: 20090209
  13. SOTALOL. [Suspect]
     Active Substance: SOTALOL
     Indication: HYPERTENSION
     Route: 065
  14. ZOPLICONE [Concomitant]
     Active Substance: ZOPICLONE
     Route: 065
  15. GLICLAZIDE [Concomitant]
     Active Substance: GLICLAZIDE
     Route: 065
  16. METFORMIN [Concomitant]
     Active Substance: METFORMIN HYDROCHLORIDE
     Route: 065
  17. ATORVASTATIN [Concomitant]
     Active Substance: ATORVASTATIN

REACTIONS (32)
  - Lower respiratory tract infection [Unknown]
  - Pain [Not Recovered/Not Resolved]
  - Fatigue [Not Recovered/Not Resolved]
  - Weight increased [Unknown]
  - Diabetic complication [Unknown]
  - Herpes zoster [Unknown]
  - Respiratory tract congestion [Not Recovered/Not Resolved]
  - Arrhythmia [Unknown]
  - Vulvovaginal dryness [Not Recovered/Not Resolved]
  - Dry throat [Recovered/Resolved]
  - Nausea [Recovering/Resolving]
  - Hypoaesthesia [Recovering/Resolving]
  - Weight decreased [Unknown]
  - Fatigue [Not Recovered/Not Resolved]
  - Malaise [Not Recovered/Not Resolved]
  - Drug effect decreased [Unknown]
  - Bone disorder [Unknown]
  - Vascular rupture [Unknown]
  - Lower respiratory tract infection [Unknown]
  - Peripheral swelling [Recovered/Resolved]
  - Dry mouth [Recovered/Resolved]
  - Heart rate decreased [Unknown]
  - Arthralgia [Recovering/Resolving]
  - Immunosuppression [Not Recovered/Not Resolved]
  - Drug ineffective [Unknown]
  - Vulvovaginal pruritus [Not Recovered/Not Resolved]
  - Pain [Unknown]
  - Arthropathy [Unknown]
  - Eye swelling [Recovered/Resolved]
  - Cough [Unknown]
  - Malaise [Unknown]
  - Blood pressure increased [Unknown]

NARRATIVE: CASE EVENT DATE: 201012
